FAERS Safety Report 24008076 (Version 1)
Quarter: 2024Q2

REPORT INFORMATION
  Report Type: Spontaneous
  Country: US (occurrence: None)
  Receive Date: 20240625
  Receipt Date: 20240625
  Transmission Date: 20240715
  Serious: No
  Sender: FDA-Public Use
  Company Number: 2024A140111

PATIENT
  Sex: Female

DRUGS (1)
  1. FARXIGA [Suspect]
     Active Substance: DAPAGLIFLOZIN PROPANEDIOL
     Indication: Cardiac failure
     Route: 048

REACTIONS (10)
  - Muscle spasms [Unknown]
  - Muscular weakness [Unknown]
  - Gait disturbance [Unknown]
  - Pain [Unknown]
  - Hyperventilation [Unknown]
  - Hyperhidrosis [Unknown]
  - Asthenia [Unknown]
  - Tenderness [Unknown]
  - Pollakiuria [Unknown]
  - Electrolyte depletion [Unknown]
